FAERS Safety Report 20150383 (Version 1)
Quarter: 2021Q4

REPORT INFORMATION
  Report Type: Spontaneous
  Country: IN (occurrence: IN)
  Receive Date: 20211206
  Receipt Date: 20211206
  Transmission Date: 20220303
  Serious: Yes (Hospitalization)
  Sender: FDA-Public Use
  Company Number: IN-BAUSCH-BL-2021-039599

PATIENT
  Sex: Male

DRUGS (1)
  1. DICLOFENAC [Suspect]
     Active Substance: DICLOFENAC
     Indication: Back pain
     Dosage: BEFORE GOING TO BED
     Route: 065

REACTIONS (2)
  - Kounis syndrome [Recovered/Resolved]
  - Generalised tonic-clonic seizure [Recovered/Resolved]
